FAERS Safety Report 17536054 (Version 1)
Quarter: 2020Q1

REPORT INFORMATION
  Report Type: Report from Study
  Country: CO (occurrence: CO)
  Receive Date: 20200313
  Receipt Date: 20200313
  Transmission Date: 20200409
  Serious: Yes (Hospitalization, Other)
  Sender: FDA-Public Use
  Company Number: CO-ROCHE-2477508

PATIENT
  Sex: Female

DRUGS (2)
  1. MEGESTROL ACETATE. [Concomitant]
     Active Substance: MEGESTROL ACETATE
     Route: 065
  2. XELODA [Suspect]
     Active Substance: CAPECITABINE
     Indication: PRODUCT USED FOR UNKNOWN INDICATION
     Route: 048

REACTIONS (10)
  - Diarrhoea [Unknown]
  - Incoherent [Unknown]
  - Major depression [Unknown]
  - Memory impairment [Unknown]
  - Weight decreased [Unknown]
  - Vomiting [Unknown]
  - Amnesia [Unknown]
  - Senile dementia [Unknown]
  - Malaise [Unknown]
  - Immunodeficiency [Unknown]
